FAERS Safety Report 4688861-2 (Version None)
Quarter: 2005Q2

REPORT INFORMATION
  Report Type: 
  Country: None (occurrence: None)
  Receive Date: 20050613
  Receipt Date: 20050607
  Transmission Date: 20051028
  Serious: Yes (Other)
  Sender: FDA-Public Use
  Company Number: PHEH2005US06355

PATIENT
  Sex: Female

DRUGS (1)
  1. GLEEVEC [Suspect]
     Indication: HYPEREOSINOPHILIC SYNDROME
     Dosage: 100 MG, QD
     Route: 048

REACTIONS (1)
  - RENAL TUBULAR NECROSIS [None]
